FAERS Safety Report 7807583 (Version 3)
Quarter: 2014Q2

REPORT INFORMATION
  Report Type: Spontaneous
  Country: US (occurrence: US)
  Receive Date: 20110210
  Receipt Date: 20140429
  Transmission Date: 20141212
  Serious: Yes (Hospitalization, Other)
  Sender: FDA-Public Use
  Company Number: US-ASTRAZENECA-2010SE55910

PATIENT
  Age: 87 Year
  Sex: Female
  Weight: 78 kg

DRUGS (4)
  1. ARIMIDEX [Suspect]
     Indication: BREAST CANCER FEMALE
     Route: 048
     Dates: start: 20040512, end: 200911
  2. ARIMIDEX [Suspect]
     Indication: BREAST CANCER FEMALE
     Dosage: GENERIC DAILY
     Route: 048
     Dates: start: 201212
  3. METOPROLOL [Suspect]
     Indication: BLOOD PRESSURE ABNORMAL
     Route: 048
  4. LISINOPRIL [Suspect]
     Indication: HYPERTENSION
     Route: 048
     Dates: start: 2011

REACTIONS (45)
  - Cerebrovascular accident [Unknown]
  - Dysphagia [Unknown]
  - Hypertension [Unknown]
  - Amnesia [Unknown]
  - Aphasia [Unknown]
  - Poor peripheral circulation [Unknown]
  - Myocardial infarction [Unknown]
  - Headache [Unknown]
  - Dizziness [Not Recovered/Not Resolved]
  - Presyncope [Unknown]
  - Cough [Unknown]
  - Dysphonia [Unknown]
  - Hyperglycaemia [Unknown]
  - Gait disturbance [Not Recovered/Not Resolved]
  - Muscular weakness [Unknown]
  - Breast pain [Not Recovered/Not Resolved]
  - Abdominal pain upper [Unknown]
  - Abdominal discomfort [Unknown]
  - Depression [Unknown]
  - Oedema peripheral [Unknown]
  - Constipation [Unknown]
  - Insomnia [Not Recovered/Not Resolved]
  - Arthropathy [Not Recovered/Not Resolved]
  - Peripheral coldness [Not Recovered/Not Resolved]
  - Muscle tightness [Not Recovered/Not Resolved]
  - Breast swelling [Not Recovered/Not Resolved]
  - Gingival swelling [Not Recovered/Not Resolved]
  - Gingival pain [Not Recovered/Not Resolved]
  - Vision blurred [Not Recovered/Not Resolved]
  - Visual impairment [Not Recovered/Not Resolved]
  - Body height decreased [Not Recovered/Not Resolved]
  - Vocal cord disorder [Not Recovered/Not Resolved]
  - Hypoaesthesia [Not Recovered/Not Resolved]
  - Lethargy [Unknown]
  - Bone pain [Unknown]
  - Diarrhoea [Unknown]
  - Joint swelling [Unknown]
  - Rash [Unknown]
  - Arthritis [Unknown]
  - Fatigue [Unknown]
  - Osteoporosis [Unknown]
  - Feeling abnormal [Unknown]
  - Weight abnormal [Unknown]
  - Malaise [Not Recovered/Not Resolved]
  - Drug dose omission [Unknown]
